FAERS Safety Report 21170178 (Version 2)
Quarter: 2025Q2

REPORT INFORMATION
  Report Type: Report from Study
  Country: CA (occurrence: CA)
  Receive Date: 20220804
  Receipt Date: 20250602
  Transmission Date: 20250717
  Serious: Yes (Hospitalization, Other)
  Sender: AUROBINDO
  Company Number: CA-AUROBINDO-AUR-APL-2022-029636

PATIENT
  Age: 2 Day

DRUGS (1)
  1. TELMISARTAN [Suspect]
     Active Substance: TELMISARTAN
     Indication: Hypertension
     Route: 064

REACTIONS (12)
  - Congenital musculoskeletal disorder of skull [Not Recovered/Not Resolved]
  - Congenital renal disorder [Not Recovered/Not Resolved]
  - Foetal disorder [Not Recovered/Not Resolved]
  - Foetal exposure during pregnancy [Not Recovered/Not Resolved]
  - Hypocalvaria [Not Recovered/Not Resolved]
  - Kidney fibrosis [Not Recovered/Not Resolved]
  - Limb deformity [Not Recovered/Not Resolved]
  - Neonatal hypotension [Not Recovered/Not Resolved]
  - Neonatal respiratory failure [Not Recovered/Not Resolved]
  - Renal tubular disorder [Not Recovered/Not Resolved]
  - Renal vein thrombosis [Not Recovered/Not Resolved]
  - Renal vessel congenital anomaly [Not Recovered/Not Resolved]
